FAERS Safety Report 10449384 (Version 1)
Quarter: 2014Q3

REPORT INFORMATION
  Report Type: Spontaneous
  Country: US (occurrence: None)
  Receive Date: 20140911
  Receipt Date: 20140911
  Transmission Date: 20150326
  Serious: Yes (Hospitalization)
  Sender: FDA-Public Use
  Company Number: None

PATIENT
  Age: 76 Year
  Sex: Male
  Weight: 84 kg

DRUGS (10)
  1. BISOPROLOL/HCTZ [Concomitant]
     Active Substance: BISOPROLOL FUMARATE\HYDROCHLOROTHIAZIDE
  2. BISMUTH SUBSALICYLATE. [Concomitant]
     Active Substance: BISMUTH SUBSALICYLATE
  3. HCTZ [Concomitant]
     Active Substance: HYDROCHLOROTHIAZIDE
  4. IODINATED CONTRAST MEDIA [Suspect]
     Active Substance: IODINE
     Indication: COMPUTERISED TOMOGRAM
     Dosage: 70 ML  ONCE  INTRAVENOUS
     Route: 042
     Dates: start: 20140331, end: 20140331
  5. OMEPRAZOLE. [Concomitant]
     Active Substance: OMEPRAZOLE
  6. ASPIRIN. [Concomitant]
     Active Substance: ASPIRIN
  7. AMLODIPINE [Concomitant]
     Active Substance: AMLODIPINE BESYLATE
  8. ROSUVASTATIN [Concomitant]
     Active Substance: ROSUVASTATIN
  9. BENAZEPRIL [Concomitant]
     Active Substance: BENAZEPRIL\BENAZEPRIL HYDROCHLORIDE
  10. NIACIN CR [Concomitant]

REACTIONS (6)
  - Fatigue [None]
  - Abdominal discomfort [None]
  - Nephropathy [None]
  - Metabolic acidosis [None]
  - Renal failure acute [None]
  - Pancreatitis [None]

NARRATIVE: CASE EVENT DATE: 20140413
